FAERS Safety Report 20641861 (Version 1)
Quarter: 2022Q1

REPORT INFORMATION
  Report Type: Spontaneous
  Country: VN (occurrence: None)
  Receive Date: 20220328
  Receipt Date: 20220328
  Transmission Date: 20220423
  Serious: Yes (Other)
  Sender: FDA-Public Use
  Company Number: VN-ROCHE-3055242

PATIENT
  Age: 68 Year
  Sex: Female

DRUGS (1)
  1. ATEZOLIZUMAB [Suspect]
     Active Substance: ATEZOLIZUMAB
     Indication: Non-small cell lung cancer
     Dosage: CYCLE 2 IMMUNE THERAPY IN SEP/2021 - OCT/2021
     Route: 065

REACTIONS (6)
  - Seizure [Recovering/Resolving]
  - Headache [Recovering/Resolving]
  - Memory impairment [Unknown]
  - Fatigue [Recovering/Resolving]
  - Confusional state [Unknown]
  - Disease progression [Recovering/Resolving]

NARRATIVE: CASE EVENT DATE: 20211001
